FAERS Safety Report 7633851-0 (Version None)
Quarter: 2011Q3

REPORT INFORMATION
  Report Type: 
  Country: None (occurrence: None)
  Receive Date: 20110725
  Receipt Date: 20110720
  Transmission Date: 20111222
  Serious: Yes (Death, Hospitalization)
  Sender: FDA-Public Use
  Company Number: BG-ASTRAZENECA-2011SE23231

PATIENT
  Age: 61 Year
  Sex: Female

DRUGS (2)
  1. IRESSA [Suspect]
     Indication: NON-SMALL CELL LUNG CANCER
     Route: 048
     Dates: start: 20100217
  2. TARCEVA [Concomitant]
     Dates: start: 20090101

REACTIONS (3)
  - COUGH [None]
  - DISEASE PROGRESSION [None]
  - DYSPNOEA [None]
